FAERS Safety Report 5143834-0 (Version None)
Quarter: 2006Q4

REPORT INFORMATION
  Report Type: 
  Country: None (occurrence: None)
  Receive Date: 20061102
  Receipt Date: 20061102
  Transmission Date: 20070319
  Serious: Yes (Life-Threatening, Hospitalization, Other)
  Sender: FDA-Public Use
  Company Number: None

PATIENT
  Age: 21 Month
  Sex: Male
  Weight: 13.6079 kg

DRUGS (1)
  1. PHENERGAN W/ CODEINE [Suspect]
     Indication: COUGH
     Dosage: AS NEEDED PO
     Route: 048
     Dates: start: 19890116, end: 19890116

REACTIONS (13)
  - ATTENTION DEFICIT/HYPERACTIVITY DISORDER [None]
  - BREATH SOUNDS ABNORMAL [None]
  - COMPLEX PARTIAL SEIZURES [None]
  - CONVULSION [None]
  - DEPRESSED LEVEL OF CONSCIOUSNESS [None]
  - DYSPNOEA [None]
  - EDUCATIONAL PROBLEM [None]
  - EYE ROLLING [None]
  - FEBRILE CONVULSION [None]
  - PYREXIA [None]
  - SOCIAL PROBLEM [None]
  - SPEECH DISORDER [None]
  - STARING [None]
